FAERS Safety Report 8354873-0 (Version None)
Quarter: 2012Q2

REPORT INFORMATION
  Report Type: 
  Country: None (occurrence: None)
  Receive Date: 20120511
  Receipt Date: 20120509
  Transmission Date: 20120825
  Serious: Yes (Life-Threatening)
  Sender: FDA-Public Use
  Company Number: FR-ASTRAZENECA-2012SE30036

PATIENT
  Age: 26508 Day
  Sex: Male

DRUGS (16)
  1. IMOVANE [Concomitant]
  2. BIPERIDIS [Concomitant]
  3. XYLOCAINE [Suspect]
     Indication: LOCAL ANAESTHESIA
     Route: 065
     Dates: start: 20120223, end: 20120223
  4. IPERTEN [Concomitant]
  5. DEBRIDAT [Concomitant]
  6. EZETIMIBE [Concomitant]
  7. DIPROSALIC [Concomitant]
  8. KETOCONAZOLE [Concomitant]
  9. AMLODIPINE BESYLATE [Concomitant]
  10. TORENTAL [Concomitant]
  11. SPIRIVA [Concomitant]
  12. CHONDROSULF [Concomitant]
  13. ATARAX [Concomitant]
  14. PLAVIX [Concomitant]
  15. APROVEL [Concomitant]
  16. RABEPRAZOLE SODIUM [Concomitant]

REACTIONS (3)
  - MALAISE [None]
  - BRADYCARDIA [None]
  - ATRIOVENTRICULAR BLOCK [None]
